FAERS Safety Report 9950296 (Version 2)
Quarter: 2014Q1

REPORT INFORMATION
  Report Type: Spontaneous
  Country: US (occurrence: US)
  Receive Date: 20140304
  Receipt Date: 20140304
  Transmission Date: 20141002
  Serious: Yes (Hospitalization)
  Sender: FDA-Public Use
  Company Number: US-SA-2013SA105444

PATIENT
  Age: 67 Year
  Sex: Male
  Weight: 67 kg

DRUGS (10)
  1. ELIGARD [Suspect]
     Indication: PROSTATE CANCER
     Route: 065
  2. ELIGARD [Suspect]
     Indication: METASTATIC NEOPLASM
     Route: 065
  3. CILOSTAZOL [Concomitant]
     Route: 048
  4. CLONIDINE [Concomitant]
     Route: 048
  5. INSULIN [Concomitant]
     Dosage: DOSE: 70/30 SQ?FERQUENCY: 28 U QAM AND 18 U QPM
     Route: 065
  6. HYDROCODONE [Concomitant]
     Dosage: 10/325 PRN, 4-44
     Route: 048
  7. LOSARTAN [Concomitant]
     Route: 048
  8. OMEPRAZOULE [Concomitant]
     Route: 048
  9. NAPROXEN [Concomitant]
     Route: 048
  10. MEGESTROL [Concomitant]
     Route: 048

REACTIONS (4)
  - Abdominal pain [Unknown]
  - Decreased appetite [Unknown]
  - Constipation [Unknown]
  - Extra dose administered [Unknown]
